FAERS Safety Report 6137817-1 (Version None)
Quarter: 2009Q1

REPORT INFORMATION
  Report Type: 
  Country: None (occurrence: None)
  Receive Date: 20090331
  Receipt Date: 20090320
  Transmission Date: 20090719
  Serious: Yes (Death, Hospitalization)
  Sender: FDA-Public Use
  Company Number: US-AMGEN-US339465

PATIENT
  Sex: Male
  Weight: 112 kg

DRUGS (9)
  1. NPLATE [Suspect]
     Indication: IDIOPATHIC THROMBOCYTOPENIC PURPURA
     Dates: start: 20080918, end: 20081015
  2. CORTICOSTEROID NOS [Concomitant]
     Dates: start: 20080711
  3. FUROSEMIDE [Concomitant]
     Route: 048
  4. SPIRONOLACTONE [Concomitant]
     Route: 048
  5. PREDNISONE [Concomitant]
     Dates: start: 20080701
  6. NEXIUM [Concomitant]
  7. LEXAPRO [Concomitant]
  8. PLAVIX [Concomitant]
  9. ASPIRIN [Concomitant]

REACTIONS (9)
  - ANAEMIA [None]
  - BACTERAEMIA [None]
  - HEPATIC CIRRHOSIS [None]
  - HEPATIC ENCEPHALOPATHY [None]
  - HYPERKALAEMIA [None]
  - MALNUTRITION [None]
  - METABOLIC ACIDOSIS [None]
  - RENAL FAILURE ACUTE [None]
  - SEPTIC SHOCK [None]
